FAERS Safety Report 6973412-X (Version None)
Quarter: 2010Q3

REPORT INFORMATION
  Report Type: 
  Country: None (occurrence: None)
  Receive Date: 20100909
  Receipt Date: 20100831
  Transmission Date: 20110219
  Serious: Yes (Hospitalization, Other)
  Sender: FDA-Public Use
  Company Number: US-PFIZER INC-2010100861

PATIENT
  Sex: Male
  Weight: 101 kg

DRUGS (10)
  1. SOLU-MEDROL [Suspect]
     Dosage: 1 G, UID, 1X/DAY
     Dates: start: 20100710, end: 20100701
  2. PREDNISONE [Suspect]
     Indication: RENAL TRANSPLANT
     Dosage: 5 MG, UID, 1X/DAY
     Route: 048
  3. PROGRAF [Suspect]
     Indication: RENAL TRANSPLANT
     Dosage: 4 MG, 2X/DAY
     Route: 048
     Dates: start: 20100705
  4. ACETYLSALICYLIC ACID [Concomitant]
     Dosage: UNK
  5. VITAMINS NOS [Concomitant]
     Dosage: UNK
  6. FLUCONAZOLE [Concomitant]
     Dosage: UNK
  7. NEXIUM [Concomitant]
     Dosage: UNK
  8. CELL CEPT [Concomitant]
     Dosage: UNK
  9. VALCYTE [Concomitant]
     Dosage: UNK
  10. CLONIDINE [Concomitant]
     Dosage: UNK

REACTIONS (2)
  - COMPLICATIONS OF TRANSPLANTED KIDNEY [None]
  - MYOPATHY [None]
